FAERS Safety Report 4680332-2 (Version None)
Quarter: 2005Q2

REPORT INFORMATION
  Report Type: 
  Country: None (occurrence: None)
  Receive Date: 20050602
  Receipt Date: 20040518
  Transmission Date: 20051028
  Serious: Yes (Death, Life-Threatening, Hospitalization)
  Sender: FDA-Public Use
  Company Number: FR-ABBOTT-04P-056-0261600-00

PATIENT
  Sex: Male
  Weight: 110 kg

DRUGS (10)
  1. SIMDAX [Suspect]
     Indication: CARDIAC FAILURE CHRONIC
     Route: 042
  2. SIMDAX [Suspect]
     Route: 042
  3. SIMDAX [Suspect]
  4. SIMDAX [Suspect]
  5. SIMDAX [Suspect]
  6. FUROSEMIDE [Concomitant]
     Indication: CARDIAC FAILURE
     Route: 042
     Dates: start: 20040516, end: 20040518
  7. DOPAMINE [Concomitant]
     Indication: RENAL FAILURE
     Route: 042
     Dates: start: 20040517, end: 20040518
  8. INSULIN [Concomitant]
     Indication: DIABETES MELLITUS
     Route: 042
     Dates: start: 20040516, end: 20040518
  9. AMIODARONE HYDROCHLORIDE [Concomitant]
     Indication: ATRIAL FIBRILLATION
     Route: 042
     Dates: start: 20040516, end: 20040518
  10. HEPARIN [Concomitant]
     Indication: ATRIAL FIBRILLATION
     Route: 042
     Dates: start: 20040516, end: 20040518

REACTIONS (6)
  - CARDIOGENIC SHOCK [None]
  - ELECTROMECHANICAL DISSOCIATION [None]
  - HYPOTENSION [None]
  - TORSADE DE POINTES [None]
  - VENTRICULAR FIBRILLATION [None]
  - VENTRICULAR TACHYCARDIA [None]
